FAERS Safety Report 9009337 (Version 1)
Quarter: 2013Q1

REPORT INFORMATION
  Report Type: Report from Study
  Country: US (occurrence: US)
  Receive Date: 20130111
  Receipt Date: 20130111
  Transmission Date: 20140127
  Serious: Yes (Other)
  Sender: FDA-Public Use
  Company Number: US-US-EMD SERONO, INC.-7186012

PATIENT
  Sex: Female

DRUGS (1)
  1. REBIF [Suspect]
     Indication: MULTIPLE SCLEROSIS
     Route: 058
     Dates: start: 20031203

REACTIONS (4)
  - Ulnar nerve injury [Not Recovered/Not Resolved]
  - Muscular weakness [Unknown]
  - Nasopharyngitis [Not Recovered/Not Resolved]
  - Abasia [Unknown]
